FAERS Safety Report 13074494 (Version 4)
Quarter: 2017Q1

REPORT INFORMATION
  Report Type: Spontaneous
  Country: VN (occurrence: VN)
  Receive Date: 20161230
  Receipt Date: 20170310
  Transmission Date: 20170428
  Serious: Yes (Death, Other)
  Sender: FDA-Public Use
  Company Number: VN-009507513-1612VNM013633

PATIENT
  Sex: Male

DRUGS (7)
  1. ESMERON [Suspect]
     Active Substance: ROCURONIUM BROMIDE
     Indication: ANAESTHETIC PREMEDICATION
     Dosage: 30 MG, UNK
     Dates: start: 20161225, end: 20161225
  2. MIDAZOLAM [Concomitant]
     Active Substance: MIDAZOLAM HYDROCHLORIDE
     Indication: PREMEDICATION
     Dosage: UNK
     Dates: start: 20161225, end: 20161225
  3. SOLU-MEDROL [Concomitant]
     Active Substance: METHYLPREDNISOLONE SODIUM SUCCINATE
     Dosage: UNK
     Dates: start: 20161225, end: 20161225
  4. ESMERON [Suspect]
     Active Substance: ROCURONIUM BROMIDE
     Dosage: 30 MG, UNK
     Dates: start: 20161225, end: 20161225
  5. DIPRIVAN [Concomitant]
     Active Substance: PROPOFOL
     Indication: PREMEDICATION
     Dosage: UNK
     Dates: start: 20161225, end: 20161225
  6. SOLU-MEDROL [Concomitant]
     Active Substance: METHYLPREDNISOLONE SODIUM SUCCINATE
     Dosage: UNK
     Dates: start: 20161225, end: 20161225
  7. ATROPINE. [Concomitant]
     Active Substance: ATROPINE
     Indication: PREMEDICATION
     Dosage: UNK
     Dates: start: 20161225, end: 20161225

REACTIONS (1)
  - Anaphylactic shock [Fatal]

NARRATIVE: CASE EVENT DATE: 20161225
